FAERS Safety Report 8072107-1 (Version None)
Quarter: 2011Q4

REPORT INFORMATION
  Report Type: 
  Country: None (occurrence: None)
  Receive Date: 20111221
  Receipt Date: 20110902
  Transmission Date: 20120403
  Serious: Yes (Other)
  Sender: FDA-Public Use
  Company Number: PHHY2011US67305

PATIENT
  Age: 49 Year
  Sex: Female

DRUGS (6)
  1. VICODIN [Concomitant]
  2. REVLIMID [Concomitant]
  3. EXJADE [Suspect]
     Indication: IRON OVERLOAD
     Dosage: 1500 MG, QD, ORAL
     Route: 048
     Dates: start: 20110318, end: 20110401
  4. ASPIRIN [Concomitant]
  5. PRILOSEC [Concomitant]
  6. CELEXA [Concomitant]

REACTIONS (5)
  - DRUG HYPERSENSITIVITY [None]
  - HEADACHE [None]
  - DIZZINESS [None]
  - HYPERHIDROSIS [None]
  - RASH [None]
